FAERS Safety Report 9642813 (Version 2)
Quarter: 2013Q4

REPORT INFORMATION
  Report Type: Spontaneous
  Country: DE (occurrence: DE)
  Receive Date: 20131024
  Receipt Date: 20131031
  Transmission Date: 20140711
  Serious: Yes (Hospitalization, Other)
  Sender: FDA-Public Use
  Company Number: DE-AMGEN-DEUSP2013073696

PATIENT
  Age: 86 Year
  Sex: Female
  Weight: 95 kg

DRUGS (7)
  1. PROLIA [Suspect]
     Indication: OSTEOPOROSIS POSTMENOPAUSAL
     Dosage: 60 MG, Q6MO
     Route: 058
     Dates: start: 201110
  2. ACCUZIDE [Concomitant]
     Dosage: UNK UNK, QD
     Route: 048
  3. CRANOC [Concomitant]
     Dosage: 80, QD
  4. NORVASC [Concomitant]
     Dosage: UNK UNK, QD
  5. OSSOFORTIN                         /00944201/ [Concomitant]
     Dosage: UNK UNK, QD
  6. PHYSIOTENS [Concomitant]
     Dosage: 0.3
  7. CALCIUM [Concomitant]

REACTIONS (2)
  - Femur fracture [Unknown]
  - Spinal fracture [Unknown]
